FAERS Safety Report 7550359-1 (Version None)
Quarter: 2011Q2

REPORT INFORMATION
  Report Type: 
  Country: None (occurrence: None)
  Receive Date: 20110615
  Receipt Date: 20110607
  Transmission Date: 20111010
  Serious: Yes (Congenital Anomaly)
  Sender: FDA-Public Use
  Company Number: US-US-EMD SERONO, INC.-7064306

PATIENT
  Sex: Male
  Weight: 3.5 kg

DRUGS (5)
  1. RESTORIL [Concomitant]
     Route: 064
  2. SYNTHROID [Concomitant]
     Route: 064
  3. REBIF [Suspect]
     Route: 064
  4. PRENATAL VITAMINS [Concomitant]
     Route: 064
  5. LYRICA [Concomitant]
     Route: 064

REACTIONS (2)
  - HYPOSPADIAS [None]
  - DRUG EXPOSURE DURING PREGNANCY [None]
